FAERS Safety Report 25556787 (Version 4)
Quarter: 2025Q3

REPORT INFORMATION
  Report Type: Spontaneous
  Country: GB (occurrence: GB)
  Receive Date: 20250715
  Receipt Date: 20250826
  Transmission Date: 20251021
  Serious: No
  Sender: PFIZER
  Company Number: GB-PFIZER INC-202500135541

PATIENT
  Age: 49 Year
  Sex: Female

DRUGS (1)
  1. ENBREL [Suspect]
     Active Substance: ETANERCEPT

REACTIONS (2)
  - Device mechanical issue [Unknown]
  - Injection site pain [Unknown]

NARRATIVE: CASE EVENT DATE: 20250101
